FAERS Safety Report 8152298-4 (Version None)
Quarter: 2012Q1

REPORT INFORMATION
  Report Type: 
  Country: None (occurrence: None)
  Receive Date: 20120214
  Receipt Date: 20120208
  Transmission Date: 20120608
  Serious: Yes (Hospitalization)
  Sender: FDA-Public Use
  Company Number: 2012SP007462

PATIENT
  Age: 60 Year
  Sex: Female

DRUGS (4)
  1. PEG-INTRON [Suspect]
     Indication: HEPATITIS C
     Dosage: 100 MCG;QW;SC  : 60 MCG;QW;SC
     Route: 058
     Dates: start: 20111220, end: 20111220
  2. PEG-INTRON [Suspect]
     Indication: HEPATITIS C
     Dosage: 100 MCG;QW;SC  : 60 MCG;QW;SC
     Route: 058
     Dates: start: 20111101
  3. EPADEL [Concomitant]
  4. REBETOL [Suspect]
     Indication: HEPATITIS C
     Dosage: 600 MG;QD;PO
     Route: 048
     Dates: start: 20111101, end: 20111222

REACTIONS (3)
  - HAEMATEMESIS [None]
  - HAEMATOCHEZIA [None]
  - PLATELET COUNT DECREASED [None]
